FAERS Safety Report 9111352 (Version 1)
Quarter: 2013Q1

REPORT INFORMATION
  Report Type: Spontaneous
  Country: US (occurrence: US)
  Receive Date: 20130219
  Receipt Date: 20130219
  Transmission Date: 20140127
  Serious: No
  Sender: FDA-Public Use
  Company Number: US-BRISTOL-MYERS SQUIBB COMPANY-16956328

PATIENT
  Age: 67 Year
  Sex: Female

DRUGS (4)
  1. ABATACEPT SUBQ INJECTION 125MG/ML [Suspect]
     Indication: RHEUMATOID ARTHRITIS
     Dosage: LAST INJECTION:07SEP2012,19OCT12?LOT#2C76351
     Route: 058
  2. VITAMIN B12 [Concomitant]
     Dosage: SHOTS
     Route: 030
  3. MOBIC [Concomitant]
  4. HYDROXYCHLOROQUINE [Concomitant]
     Dosage: DOSE DECREASED TO 1 PILL

REACTIONS (3)
  - Sinusitis [Unknown]
  - Weight decreased [Unknown]
  - Blood iron decreased [Unknown]
